FAERS Safety Report 19677367 (Version 1)
Quarter: 2021Q3

REPORT INFORMATION
  Report Type: Spontaneous
  Country: US (occurrence: US)
  Receive Date: 20210810
  Receipt Date: 20210810
  Transmission Date: 20211014
  Serious: No
  Sender: FDA-Public Use
  Company Number: US-GLAXOSMITHKLINE-USCH2021051545

PATIENT
  Age: 36 Year
  Sex: Female

DRUGS (1)
  1. NICODERM CQ [Suspect]
     Active Substance: NICOTINE
     Indication: DRUG WITHDRAWAL MAINTENANCE THERAPY
     Dosage: UNK
     Route: 061
     Dates: start: 20210801, end: 20210801

REACTIONS (5)
  - Rash macular [Unknown]
  - Skin fissures [Unknown]
  - Application site irritation [Unknown]
  - Application site erythema [Unknown]
  - Application site vesicles [Unknown]

NARRATIVE: CASE EVENT DATE: 20210801
